FAERS Safety Report 13079914 (Version 1)
Quarter: 2017Q1

REPORT INFORMATION
  Report Type: Other
  Country: GB (occurrence: GB)
  Receive Date: 20170103
  Receipt Date: 20170103
  Transmission Date: 20170428
  Serious: Yes (Other)
  Sender: FDA-Public Use
  Company Number: GB-TAKEDA-2017TJP000008

PATIENT
  Age: 61 Year
  Sex: Female
  Weight: 75 kg

DRUGS (5)
  1. ZAPAIN [Concomitant]
     Active Substance: ACETAMINOPHEN\CODEINE PHOSPHATE
     Dosage: UNK UNK, QID
     Dates: start: 20160107
  2. LANSOPRAZOLE. [Suspect]
     Active Substance: LANSOPRAZOLE
     Indication: PRODUCT USED FOR UNKNOWN INDICATION
     Dosage: UNK
     Route: 065
     Dates: start: 20161124
  3. BECONASE AQ [Concomitant]
     Active Substance: BECLOMETHASONE DIPROPIONATE MONOHYDRATE
     Dosage: IN EACH NOSTRIL, BID
     Dates: start: 20150430
  4. NAPROXEN. [Concomitant]
     Active Substance: NAPROXEN
     Dosage: 1 DF, QD
     Dates: start: 20161104, end: 20161202
  5. FLUOXETINE [Concomitant]
     Active Substance: FLUOXETINE HYDROCHLORIDE
     Dosage: 2 DF, QD
     Dates: start: 20160107

REACTIONS (2)
  - Glossodynia [Recovered/Resolved]
  - Feeding disorder [Recovered/Resolved]

NARRATIVE: CASE EVENT DATE: 20161215
